FAERS Safety Report 6856783-4 (Version None)
Quarter: 2010Q3

REPORT INFORMATION
  Report Type: 
  Country: None (occurrence: None)
  Receive Date: 20100719
  Receipt Date: 20100707
  Transmission Date: 20110219
  Serious: Yes (Hospitalization)
  Sender: FDA-Public Use
  Company Number: PH-JNJFOC-20070705045

PATIENT
  Sex: Female
  Weight: 58 kg

DRUGS (42)
  1. PLACEBO [Suspect]
     Indication: RHEUMATOID ARTHRITIS
     Dosage: WEEK 0
     Route: 058
  2. PLACEBO [Suspect]
     Dosage: WEEK 4
     Route: 058
  3. PLACEBO [Suspect]
     Dosage: WEEK 8
     Route: 058
  4. PLACEBO [Suspect]
     Dosage: WEEK 12
     Route: 058
  5. PLACEBO [Suspect]
     Dosage: WEEK 16
     Route: 058
  6. PLACEBO [Suspect]
     Dosage: WEEK 20
     Route: 058
  7. PLACEBO [Suspect]
     Dosage: WEEK 24
     Route: 058
  8. PLACEBO [Suspect]
     Dosage: WEEK 28
     Route: 058
  9. METHOTREXATE [Suspect]
     Indication: RHEUMATOID ARTHRITIS
     Dosage: WEEK 13, 2.5 MG, 8 CAPSULES
     Route: 048
  10. METHOTREXATE [Suspect]
     Dosage: WEEK 12, 2.5 MG, 8 CAPSULES
     Route: 048
  11. METHOTREXATE [Suspect]
     Dosage: WEEK 11, 2.5 MG, 8 CAPSULES
     Route: 048
  12. METHOTREXATE [Suspect]
     Dosage: WEEK 10, 2.5 MG, 8 CAPSULES
     Route: 048
  13. METHOTREXATE [Suspect]
     Dosage: WEEK 9, 2.5 MG, 8 CAPSULES
     Route: 048
  14. METHOTREXATE [Suspect]
     Dosage: WEEK 9, 2.5 MG, 8 CAPSULES
     Route: 048
  15. METHOTREXATE [Suspect]
     Dosage: WEEK 8, 2.5 MG, 8 CAPSULES
     Route: 048
  16. METHOTREXATE [Suspect]
     Dosage: WEEK 6, 2.5 MG, 8 CAPSULES
     Route: 048
  17. METHOTREXATE [Suspect]
     Dosage: WEEK 5, 2.5 MG, 7 CAPSULES
     Route: 048
  18. METHOTREXATE [Suspect]
     Dosage: WEEK 4, 2.5 MG, 6 CAPSULES
     Route: 048
  19. METHOTREXATE [Suspect]
     Dosage: WEEK 3, 2.5 MG, 5 CAPSULES
     Route: 048
  20. METHOTREXATE [Suspect]
     Dosage: WEEK 24, 8 CAPSULES
     Route: 048
  21. METHOTREXATE [Suspect]
     Dosage: WEEK 1, 2.5 MG, 4 CAPSULES
     Route: 048
  22. METHOTREXATE [Suspect]
     Dosage: WEEK 0, 2.5 MG, 4 CAPSULES
     Route: 048
  23. METHOTREXATE [Suspect]
     Dosage: WEEK 14, 2.5 MG, 8 CAPSULES
     Route: 048
  24. METHOTREXATE [Suspect]
     Dosage: WEEK 15, 8 CAPSULES
     Route: 048
  25. METHOTREXATE [Suspect]
     Dosage: WEEK 16, 8 CAPSULES
     Route: 048
  26. METHOTREXATE [Suspect]
     Dosage: WEEK 18, 8 CAPSULES
     Route: 048
  27. METHOTREXATE [Suspect]
     Dosage: WEEK 19, 8 CAPSULES
     Route: 048
  28. METHOTREXATE [Suspect]
     Dosage: WEEK 20, 8 CAPSULES
     Route: 048
  29. METHOTREXATE [Suspect]
     Dosage: WEEK 21, 8 CAPSULES
     Route: 048
  30. METHOTREXATE [Suspect]
     Dosage: WEEK 22, CAPSULES
     Route: 048
  31. METHOTREXATE [Suspect]
     Dosage: WEEK 23, 8 CAPSULES
     Route: 048
  32. METHOTREXATE [Suspect]
     Dosage: WEEK 2, 2.5 MG, 5 CAPSULES
     Route: 048
  33. NEUROBION [Concomitant]
     Route: 048
  34. CALTRATE PLUS [Concomitant]
     Route: 048
  35. MOBIC [Concomitant]
     Route: 048
  36. MOBIC [Concomitant]
     Route: 048
  37. MOBIC [Concomitant]
     Route: 048
  38. PREDNISONE [Concomitant]
  39. ISONIAZID [Concomitant]
  40. FOLIC ACID [Concomitant]
     Route: 048
  41. HYZAAR [Concomitant]
     Route: 048
  42. HYDROCHLOROTHIAZIDE [Concomitant]
     Indication: HYPERTENSION

REACTIONS (1)
  - PNEUMONIA [None]
